FAERS Safety Report 5869741-3 (Version None)
Quarter: 2008Q3

REPORT INFORMATION
  Report Type: 
  Country: None (occurrence: None)
  Receive Date: 20080904
  Receipt Date: 20080825
  Transmission Date: 20090109
  Serious: Yes (Other)
  Sender: FDA-Public Use
  Company Number: US-ROCHE-552225

PATIENT
  Sex: Female
  Weight: 54.4 kg

DRUGS (7)
  1. ACCUTANE [Suspect]
     Indication: ACNE
     Route: 048
     Dates: start: 19971024, end: 19980318
  2. ACCUTANE [Suspect]
     Dosage: ISOTRETINOIN 40 MG EVERY MONDAYS, WEDNESDAYS, AND FRIDAYS
     Route: 048
     Dates: start: 19980319, end: 19980401
  3. ACCUTANE [Suspect]
     Route: 048
     Dates: start: 19981201, end: 19990307
  4. ACCUTANE [Suspect]
     Route: 048
     Dates: start: 19990308, end: 19990324
  5. ACCUTANE [Suspect]
     Route: 048
     Dates: start: 19990325, end: 19990411
  6. ACCUTANE [Suspect]
     Route: 048
     Dates: start: 19990412, end: 19990517
  7. ACCUTANE [Suspect]
     Route: 048
     Dates: start: 19990518, end: 19990601

REACTIONS (3)
  - COLITIS [None]
  - INFLAMMATORY BOWEL DISEASE [None]
  - PROCTITIS [None]
